FAERS Safety Report 10592875 (Version 9)
Quarter: 2015Q3

REPORT INFORMATION
  Report Type: Report from Study
  Country: US (occurrence: US)
  Receive Date: 20141119
  Receipt Date: 20150911
  Transmission Date: 20151125
  Serious: Yes (Other)
  Sender: FDA-Public Use
  Company Number: US-BAYER-2014-123502

PATIENT
  Age: 66 Year
  Sex: Female

DRUGS (2)
  1. STIVARGA [Suspect]
     Active Substance: REGORAFENIB
     Indication: RECTAL CANCER
     Dosage: 160 MG, QD FOR 21 DAYS ON AND 7 DAYS OFF
     Route: 048
     Dates: start: 20140722
  2. STIVARGA [Suspect]
     Active Substance: REGORAFENIB
     Indication: RECTAL CANCER
     Dosage: 2 TABLETS DAILY (3 WEEKS ON AND 1 WEEK OFF)
     Route: 048
     Dates: start: 20140722, end: 201410

REACTIONS (12)
  - Rectal cancer [None]
  - Asthenia [Not Recovered/Not Resolved]
  - Drug ineffective [None]
  - Drug intolerance [None]
  - Hypertension [Recovering/Resolving]
  - Tremor [Not Recovered/Not Resolved]
  - Metastases to lymph nodes [None]
  - Neuropathy peripheral [Not Recovered/Not Resolved]
  - Paratracheal lymphadenopathy [None]
  - Lymphadenopathy [None]
  - Decreased appetite [Not Recovered/Not Resolved]
  - Weight decreased [Not Recovered/Not Resolved]

NARRATIVE: CASE EVENT DATE: 2014
